FAERS Safety Report 9998014 (Version 1)
Quarter: 2014Q1

REPORT INFORMATION
  Report Type: Spontaneous
  Country: GB (occurrence: GB)
  Receive Date: 20140311
  Receipt Date: 20140311
  Transmission Date: 20141002
  Serious: Yes (Other)
  Sender: FDA-Public Use
  Company Number: PHHY2014GB026538

PATIENT
  Age: 57 Year
  Sex: Male

DRUGS (9)
  1. HEPARIN [Suspect]
     Indication: ANTICOAGULANT THERAPY
     Route: 042
  2. WARFARIN [Interacting]
     Indication: ANTICOAGULANT THERAPY
  3. WARFARIN [Interacting]
     Indication: PULMONARY EMBOLISM
  4. FRAGMIN [Interacting]
     Indication: ANTICOAGULANT THERAPY
     Dosage: 18000 UNITS
  5. OCTAPLEX [Concomitant]
  6. CO-AMOXICLAV [Concomitant]
     Route: 048
  7. PREDNISOLONE [Concomitant]
  8. BENZYL PENICILLIN [Concomitant]
  9. FLUCLOXACILLIN [Concomitant]

REACTIONS (12)
  - Compartment syndrome [Unknown]
  - Arthralgia [Unknown]
  - Pain in extremity [Unknown]
  - Paraesthesia [Unknown]
  - Muscle oedema [Unknown]
  - Muscle tightness [Unknown]
  - Rash [Unknown]
  - Skin discolouration [Unknown]
  - Erythema [Unknown]
  - Haemorrhage [Unknown]
  - Haemoglobin decreased [Unknown]
  - Drug interaction [Unknown]
